FAERS Safety Report 6531811-4 (Version None)
Quarter: 2010Q1

REPORT INFORMATION
  Report Type: 
  Country: None (occurrence: None)
  Receive Date: 20100107
  Receipt Date: 20100107
  Transmission Date: 20100710
  Serious: No
  Sender: FDA-Public Use
  Company Number: None

PATIENT
  Sex: Female

DRUGS (1)
  1. PENICILLIN VK [Suspect]
     Dosage: 500MG 4 TIMES DAILY PO
     Route: 048

REACTIONS (2)
  - NAUSEA [None]
  - VOMITING [None]
